FAERS Safety Report 26196691 (Version 1)
Quarter: 2025Q4

REPORT INFORMATION
  Report Type: Spontaneous
  Country: US (occurrence: US)
  Receive Date: 20251224
  Receipt Date: 20251224
  Transmission Date: 20260118
  Serious: Yes (Other)
  Sender: STRIDES
  Company Number: US-STRIDES ARCOLAB LIMITED-2025SP014422

PATIENT

DRUGS (22)
  1. METHOTREXATE [Suspect]
     Active Substance: METHOTREXATE
     Indication: Parkinsonism
     Dosage: 12 MILLIGRAMS
     Route: 037
  2. METHOTREXATE [Suspect]
     Active Substance: METHOTREXATE
     Indication: Movement disorder
  3. METHOTREXATE [Suspect]
     Active Substance: METHOTREXATE
     Indication: Neurotoxicity
  4. DEXAMETHASONE [Suspect]
     Active Substance: DEXAMETHASONE
     Indication: Cytokine release syndrome
     Dosage: UNK
     Route: 065
  5. DEXAMETHASONE [Suspect]
     Active Substance: DEXAMETHASONE
     Indication: Parkinsonism
  6. DEXAMETHASONE [Suspect]
     Active Substance: DEXAMETHASONE
     Indication: Immune effector cell-associated neurotoxicity syndrome
  7. DEXAMETHASONE [Suspect]
     Active Substance: DEXAMETHASONE
     Indication: Movement disorder
  8. DEXAMETHASONE [Suspect]
     Active Substance: DEXAMETHASONE
     Indication: Neurotoxicity
  9. CYTARABINE [Suspect]
     Active Substance: CYTARABINE
     Indication: Parkinsonism
     Dosage: 50 MILLIGRAMS
     Route: 037
  10. CYTARABINE [Suspect]
     Active Substance: CYTARABINE
     Indication: Movement disorder
  11. CYTARABINE [Suspect]
     Active Substance: CYTARABINE
     Indication: Neurotoxicity
  12. HYDROCORTISONE [Suspect]
     Active Substance: HYDROCORTISONE
     Indication: Parkinsonism
     Dosage: 50 MILLIGRAMS
     Route: 037
  13. HYDROCORTISONE [Suspect]
     Active Substance: HYDROCORTISONE
     Indication: Movement disorder
  14. HYDROCORTISONE [Suspect]
     Active Substance: HYDROCORTISONE
     Indication: Neurotoxicity
  15. THIOTEPA [Suspect]
     Active Substance: THIOTEPA
     Indication: Parkinsonism
     Dosage: 10 MILLIGRAMS
     Route: 037
  16. THIOTEPA [Suspect]
     Active Substance: THIOTEPA
     Indication: Movement disorder
  17. THIOTEPA [Suspect]
     Active Substance: THIOTEPA
     Indication: Neurotoxicity
  18. CILTACABTAGENE AUTOLEUCEL [Concomitant]
     Active Substance: CILTACABTAGENE AUTOLEUCEL
     Indication: Plasma cell myeloma refractory
     Dosage: UNK, INFUSION
     Route: 065
  19. FLUDARABINE [Concomitant]
     Active Substance: FLUDARABINE PHOSPHATE
     Indication: Plasma cell myeloma refractory
     Dosage: UNK
     Route: 065
  20. CYCLOPHOSPHAMIDE [Concomitant]
     Active Substance: CYCLOPHOSPHAMIDE
     Indication: Plasma cell myeloma refractory
     Dosage: UNK
     Route: 065
  21. TOCILIZUMAB [Concomitant]
     Active Substance: TOCILIZUMAB
     Indication: Cytokine release syndrome
     Dosage: UNK
     Route: 065
  22. TOCILIZUMAB [Concomitant]
     Active Substance: TOCILIZUMAB
     Indication: Immune effector cell-associated neurotoxicity syndrome

REACTIONS (2)
  - Therapy non-responder [Unknown]
  - Off label use [Unknown]
